FAERS Safety Report 14760842 (Version 2)
Quarter: 2018Q2

REPORT INFORMATION
  Report Type: Spontaneous
  Country: US (occurrence: US)
  Receive Date: 20180415
  Receipt Date: 20180514
  Transmission Date: 20180711
  Serious: No
  Sender: FDA-Public Use
  Company Number: US-JNJFOC-20180320803

PATIENT
  Age: 1 Year
  Sex: Male
  Weight: 13.15 kg

DRUGS (2)
  1. MOTRIN [Suspect]
     Active Substance: IBUPROFEN
     Indication: PROPHYLAXIS
     Route: 048
     Dates: start: 20180309, end: 20180309
  2. MOTRIN [Suspect]
     Active Substance: IBUPROFEN
     Indication: ORAL PAIN
     Route: 048
     Dates: start: 20180309, end: 20180309

REACTIONS (3)
  - Product use in unapproved indication [Unknown]
  - Vomiting [Recovered/Resolved]
  - Emotional disorder [Recovered/Resolved]

NARRATIVE: CASE EVENT DATE: 20180309
